FAERS Safety Report 4760400-7 (Version None)
Quarter: 2005Q3

REPORT INFORMATION
  Report Type: 
  Country: None (occurrence: None)
  Receive Date: 20050902
  Receipt Date: 20050815
  Transmission Date: 20060218
  Serious: Yes (Other)
  Sender: FDA-Public Use
  Company Number: GB-GLAXOSMITHKLINE-B0392444A

PATIENT
  Age: 54 Year

DRUGS (2)
  1. LAMOTRIGINE [Suspect]
     Dosage: 100MG AT NIGHT
  2. VALPROATE SODIUM [Suspect]
     Dosage: 100MG AT NIGHT

REACTIONS (2)
  - GAMMA-GLUTAMYLTRANSFERASE INCREASED [None]
  - MACROCYTOSIS [None]
